FAERS Safety Report 9385926 (Version 3)
Quarter: 2013Q3

REPORT INFORMATION
  Report Type: Spontaneous
  Country: JP (occurrence: JP)
  Receive Date: 20130705
  Receipt Date: 20130822
  Transmission Date: 20140515
  Serious: Yes (Hospitalization)
  Sender: FDA-Public Use
  Company Number: JP-009507513-1307JPN002390

PATIENT
  Age: 64 Year
  Sex: Male
  Weight: 54 kg

DRUGS (8)
  1. ZETIA TABLETS 10MG [Suspect]
     Indication: HYPERLIPIDAEMIA
     Dosage: 10 MG, QD
     Route: 048
     Dates: start: 20130304, end: 20130610
  2. CRAVIT [Suspect]
     Indication: PNEUMONIA
     Dosage: 500 MG, DIVIDED DOSE FREQUENCY UNKNOWN
     Route: 048
     Dates: start: 20130501, end: 20130510
  3. CRAVIT [Suspect]
     Dosage: DIVIDED DOSE FREQUENCY UNKNOWN
     Route: 048
     Dates: start: 20130304, end: 20130308
  4. OVULANZE [Suspect]
     Indication: GASTRITIS
     Dosage: 20MG, DIVIDED DOSE FREQUENCY UNKNOWN
     Route: 048
     Dates: start: 20090414, end: 20130610
  5. CRAVIT [Suspect]
     Indication: PNEUMONIA
     Dosage: 500MG, DIVIDED DOSE FREQUENCY UNKNOWN
     Route: 041
     Dates: start: 20130605, end: 20130605
  6. DEPAS [Concomitant]
     Indication: INSOMNIA
     Dosage: 0.5MG, DIVIDED DOSE FREQUENCY UNKNOWN
     Route: 048
  7. LENDORMIN [Concomitant]
     Indication: INSOMNIA
     Dosage: 0.25 MG, DIVIDED DOSE FREQUENCY UNKNOWN
     Route: 048
  8. SPIRIVA [Concomitant]
     Indication: RESPIRATORY FAILURE
     Dosage: 5 MICROGRAM, DIVIDED DOSE FREQUENCY UNKNOWN
     Route: 055

REACTIONS (1)
  - Tubulointerstitial nephritis [Recovered/Resolved with Sequelae]
